FAERS Safety Report 16132336 (Version 1)
Quarter: 2019Q1

REPORT INFORMATION
  Report Type: Spontaneous
  Country: US (occurrence: US)
  Receive Date: 20190225
  Receipt Date: 20190225
  Transmission Date: 20190418
  Serious: Yes (Hospitalization)
  Sender: FDA-Public Use
  Company Number: None

PATIENT
  Age: 26 Year
  Sex: Female

DRUGS (21)
  1. PULMOZYME [Suspect]
     Active Substance: DORNASE ALFA
     Indication: CYSTIC FIBROSIS
     Dosage: ?          OTHER DOSE:2.5/2.5 MG/ML;?
     Route: 048
     Dates: start: 20140109
  2. ALBUTEROL. [Concomitant]
     Active Substance: ALBUTEROL
  3. PARI VIOS [Concomitant]
  4. PREDNISONE. [Concomitant]
     Active Substance: PREDNISONE
  5. ACETAMINOPHE [Concomitant]
  6. ACAPELLA DM [Concomitant]
  7. CIPROFLOXACIN. [Concomitant]
     Active Substance: CIPROFLOXACIN
  8. SODIUM CHLCR [Concomitant]
  9. CREON [Concomitant]
     Active Substance: PANCRELIPASE AMYLASE\PANCRELIPASE LIPASE\PANCRELIPASE PROTEASE
  10. FAMOTIDINE. [Concomitant]
     Active Substance: FAMOTIDINE
  11. PARI LC [Concomitant]
  12. NOVOLOG [Concomitant]
     Active Substance: INSULIN ASPART
  13. PEG 3350 [Concomitant]
     Active Substance: POLYETHYLENE GLYCOL 3350
  14. ONDANSETRON [Concomitant]
     Active Substance: ONDANSETRON
  15. VENTOLIN HFA AER [Concomitant]
  16. BENZONATATE. [Concomitant]
     Active Substance: BENZONATATE
  17. SMZ/TMP DS [Concomitant]
     Active Substance: SULFAMETHOXAZOLE\TRIMETHOPRIM
  18. LANTUS [Concomitant]
     Active Substance: INSULIN GLARGINE
  19. MAG OXIDE [Concomitant]
     Active Substance: MAGNESIUM OXIDE
  20. METOPROLOL TARTRATE. [Concomitant]
     Active Substance: METOPROLOL TARTRATE
  21. LINEZOLID. [Concomitant]
     Active Substance: LINEZOLID

REACTIONS (1)
  - Infective pulmonary exacerbation of cystic fibrosis [None]
